FAERS Safety Report 6218297-4 (Version None)
Quarter: 2009Q2

REPORT INFORMATION
  Report Type: 
  Country: None (occurrence: None)
  Receive Date: 20090604
  Receipt Date: 20090604
  Transmission Date: 20091009
  Serious: No
  Sender: FDA-Public Use
  Company Number: None

PATIENT
  Age: 48 Year
  Sex: Female
  Weight: 67.1324 kg

DRUGS (1)
  1. CIPRO [Suspect]
     Indication: URINARY TRACT INFECTION
     Dosage: 1 TAB 2 TIMES PER DAY PO
     Route: 048
     Dates: start: 20090301, end: 20090302

REACTIONS (8)
  - ARTHRALGIA [None]
  - C-REACTIVE PROTEIN INCREASED [None]
  - MOBILITY DECREASED [None]
  - MUSCULOSKELETAL PAIN [None]
  - PAIN IN EXTREMITY [None]
  - PAIN IN JAW [None]
  - PLATELET COUNT INCREASED [None]
  - TENDON RUPTURE [None]
